FAERS Safety Report 14990122 (Version 4)
Quarter: 2018Q4

REPORT INFORMATION
  Report Type: Spontaneous
  Country: US (occurrence: US)
  Receive Date: 20180608
  Receipt Date: 20181220
  Transmission Date: 20190204
  Serious: No
  Sender: FDA-Public Use
  Company Number: US-VERTEX PHARMACEUTICALS-2018-003557

PATIENT
  Sex: Female
  Weight: 60 kg

DRUGS (52)
  1. SYMDEKO [Suspect]
     Active Substance: IVACAFTOR\TEZACAFTOR
     Indication: CYSTIC FIBROSIS
     Dosage: 100MG TEZACAFTOR/150MG IVACAFTOR AM; 150MG IVACAFTOR PM
     Route: 048
     Dates: start: 20180327, end: 201804
  2. HYDROCHLOROTHIAZIDE. [Concomitant]
     Active Substance: HYDROCHLOROTHIAZIDE
     Dosage: UNK
     Route: 048
  3. SINGULAIR [Concomitant]
     Active Substance: MONTELUKAST SODIUM
     Dosage: UNK
  4. CALCIUM CARBONATE. [Concomitant]
     Active Substance: CALCIUM CARBONATE
     Dosage: 1 TAB(S) ORALLY 3 TIMES A DAY
  5. IRBESARTAN. [Concomitant]
     Active Substance: IRBESARTAN
     Dosage: 1 TAB(S) ORALLY ONCE A DAY
  6. TIOTROPIUM [Concomitant]
     Active Substance: TIOTROPIUM
     Dosage: 1 CAP(S) INHALED ONCE A DAY
     Route: 055
  7. HEPARIN [Concomitant]
     Active Substance: HEPARIN SODIUM
     Dosage: 5 ML (100UNIT/ML), ONCE
     Route: 042
  8. SYMDEKO [Interacting]
     Active Substance: IVACAFTOR\TEZACAFTOR
     Dosage: ALTERNATE ONE YELLOW TABLET AND ONE BLUE TABLET EACH DAY
     Route: 048
     Dates: start: 201804, end: 2018
  9. PULMOZYME [Concomitant]
     Active Substance: DORNASE ALFA
     Dosage: 2.5 MILLILITER(S) INHALED ONCE A DAY
     Route: 055
  10. NASACORT AQ [Concomitant]
     Active Substance: TRIAMCINOLONE ACETONIDE
     Dosage: 2 SPRAY(S) NASAL ONCE A DAY
     Route: 045
  11. PROLIA [Concomitant]
     Active Substance: DENOSUMAB
     Dosage: EVERY 6 MONTHS
  12. AMLODIPINE [Concomitant]
     Active Substance: AMLODIPINE BESYLATE
     Dosage: 1 TAB(S) ORALLY ONCE A DAY
  13. CHOLECALCIFEROL [Concomitant]
     Active Substance: CHOLECALCIFEROL
     Dosage: 1 CAP(S) ORALLY 3 TIMES A DAY
     Route: 048
  14. ASCORBIC ACID. [Concomitant]
     Active Substance: ASCORBIC ACID
     Dosage: 2000 MG ORAL EVERY 24 HOURS
     Route: 048
  15. DIPHENHYDRAMINE. [Concomitant]
     Active Substance: DIPHENHYDRAMINE
     Dosage: 25 MG ORAL EVERY 6 HOURS?PRN
  16. FLUTICASONE W/SALMETEROL [Concomitant]
     Active Substance: FLUTICASONE PROPIONATE\SALMETEROL XINAFOATE
     Dosage: 1 INHALATION EVERY 12 HOURS
  17. ALLEGRA [Concomitant]
     Active Substance: FEXOFENADINE HYDROCHLORIDE
     Dosage: 1 TAB(S) ORALLY ONCE A DAY, AS NEEDED
  18. MEPHYTON [Concomitant]
     Active Substance: PHYTONADIONE
     Dosage: 2 MILLIGRAM(S) ORALLY ONCE A DAY
  19. NAC                                /00082801/ [Concomitant]
     Dosage: 1 CAP(S) ORALLY PRN
     Route: 048
  20. CURCUMIN [Concomitant]
     Active Substance: CURCUMIN
     Dosage: 2 CAP(S) ORALLY ONCE A DAY
  21. BERBERINE [Concomitant]
     Active Substance: BERBERINE
     Dosage: 1 TAB(S) ORALLY 2 TIMES A DAY
  22. CEFTAZIDIME. [Concomitant]
     Active Substance: CEFTAZIDIME
     Dosage: 4000 MG, TID
     Route: 042
  23. COLISTIMETHATE                     /00013204/ [Concomitant]
     Active Substance: COLISTIMETHATE SODIUM
     Dosage: 35 MG IV PIGGY BACK, TID
     Route: 042
  24. VITAMIN K [Concomitant]
     Active Substance: PHYTONADIONE
  25. SYMDEKO [Interacting]
     Active Substance: IVACAFTOR\TEZACAFTOR
     Dosage: ONE YELLOW TABLET 5 DAYS PER WEEK AND ONE BLUE TABLET TWICE PER WEEK
     Route: 048
     Dates: start: 201805, end: 2018
  26. ADVAIR HFA [Concomitant]
     Active Substance: FLUTICASONE PROPIONATE\SALMETEROL XINAFOATE
     Dosage: 1 PUFF(S) INHALED 2 TIMES A DAY
     Route: 055
  27. VITAMIN B COMPLEX [Concomitant]
     Active Substance: CYANOCOBALAMIN\DEXPANTHENOL\NIACINAMIDE\PYRIDOXINE HYDROCHLORIDE\RIBOFLAVIN 5^-PHOSPHATE SODIUM\THIAMINE HYDROCHLORIDE\VITAMIN B COMPLEX
     Dosage: 1 TAB(S) ORALLY 2 TIMES A DAY
     Route: 048
  28. ACETAMINOPHEN. [Concomitant]
     Active Substance: ACETAMINOPHEN
     Dosage: 650 MG, TID, PRN
     Route: 048
  29. FEXOFENADINE [Concomitant]
     Active Substance: FEXOFENADINE\FEXOFENADINE HYDROCHLORIDE
     Dosage: 180 MG ORAL DAILY
  30. DORNASE [Concomitant]
     Active Substance: STREPTODORNASE\STREPTOKINASE
     Dosage: 2.5 MG INHALATION, EVERY 24 HRS
  31. ALBUTEROL                          /00139501/ [Concomitant]
     Active Substance: ALBUTEROL
     Dosage: UNK
     Route: 055
  32. ATIVAN [Concomitant]
     Active Substance: LORAZEPAM
     Dosage: 1 TAB PRN, AS NEEDED -2 TAB(S)
     Route: 048
  33. MELATONIN [Concomitant]
     Active Substance: MELATONIN
     Dosage: 10 MG, AT BEDTIME
     Route: 048
  34. LORAZEPAM. [Concomitant]
     Active Substance: LORAZEPAM
     Dosage: 1 MG, EVERY 6HRS, PRN
     Route: 048
  35. SODIUM CHLORIDE. [Concomitant]
     Active Substance: SODIUM CHLORIDE
     Dosage: 3 ML INTRAVENOUS FLUSH, EVERY 8 HOURS AND AS NEEDED
  36. DULCOLAX (BISACODYL) [Concomitant]
     Active Substance: BISACODYL
  37. ALBUTEROL                          /00139501/ [Concomitant]
     Active Substance: ALBUTEROL
     Dosage: 3 MILLILITER(S) INHALED 3 TIMES A DAY
  38. MAGNESIUM CITRATE. [Concomitant]
     Active Substance: MAGNESIUM CITRATE
     Dosage: 1000MG ORALLY ONCE A DAY
  39. ZOLPIDEM [Concomitant]
     Active Substance: ZOLPIDEM\ZOLPIDEM TARTRATE
     Dosage: 1 TAB(S) ORALLY ONCE A DAY (AT BEDTIME), AS NEEDED
     Route: 048
  40. CALCIUM CITRATE [Concomitant]
     Active Substance: CALCIUM CITRATE
     Dosage: 600 MG ELEMENTAL CALCIUM ORAL 3 TIMES A DAY
  41. MAGNESIUM OXIDE. [Concomitant]
     Active Substance: MAGNESIUM OXIDE
     Dosage: 300 MG ELEMENTAL MAGNESIUM
     Route: 048
  42. SYMDEKO [Interacting]
     Active Substance: IVACAFTOR\TEZACAFTOR
     Dosage: 100MG TEZACAFTOR/150MG IVACAFTOR AM; 150MG IVACAFTOR PM
     Route: 048
     Dates: start: 2018
  43. CARDIZEM CD [Interacting]
     Active Substance: DILTIAZEM HYDROCHLORIDE
     Indication: HYPERTENSION
     Dosage: 240 MG, QD
     Route: 048
     Dates: end: 2018
  44. NYSTATIN. [Concomitant]
     Active Substance: NYSTATIN
     Dosage: 500000 UNIT(S), EVERY 6 HOURS, PRN
     Route: 048
  45. HEPARIN [Concomitant]
     Active Substance: HEPARIN SODIUM
     Dosage: 3 ML (10UNIT/ML), TID, PRN
     Route: 042
  46. MAGNESIUM HYDROXIDE W/SIMETHICONE [Concomitant]
     Dosage: 30 ML, EVERY 6HRS., PRN
     Route: 048
  47. TOBRAMYCIN. [Concomitant]
     Active Substance: TOBRAMYCIN
  48. BIOTENE                            /03475601/ [Concomitant]
     Dosage: 1 TAB(S) ORALLY ONCE A DAY
  49. FLAXSEED OIL                       /01649403/ [Concomitant]
     Dosage: 1400MG ORALLY ONCE A DAY
  50. MONTELUKAST [Concomitant]
     Active Substance: MONTELUKAST SODIUM
     Dosage: 1 TAB(S) ORALLY ONCE A DAY
  51. VITAMIN E                          /00110501/ [Concomitant]
     Active Substance: TOCOPHEROL
     Dosage: 1 CAP(S) ORALLY ONCE A DAY
     Route: 048
  52. POLYETHYLENE GLYCOL [Concomitant]
     Active Substance: POLYETHYLENE GLYCOLS
     Dosage: 17 G, EVERY 4HRS, PRN

REACTIONS (2)
  - Intentional product misuse [Unknown]
  - Drug interaction [Recovered/Resolved]

NARRATIVE: CASE EVENT DATE: 2018
